FAERS Safety Report 9379033 (Version 2)
Quarter: 2013Q3

REPORT INFORMATION
  Report Type: Spontaneous
  Country: US (occurrence: None)
  Receive Date: 20130626
  Receipt Date: 20130723
  Transmission Date: 20140515
  Serious: Yes (Hospitalization)
  Sender: FDA-Public Use
  Company Number: 2013P1009557

PATIENT
  Sex: Female
  Weight: 56.7 kg

DRUGS (10)
  1. OPIUM TINCTURE [Suspect]
     Indication: SHORT-BOWEL SYNDROME
     Dosage: 9 TIMES/DAY
     Route: 048
     Dates: start: 2009
  2. OPIUM TINCTURE [Suspect]
     Indication: DIARRHOEA
     Dosage: 9 TIMES/DAY
     Route: 048
     Dates: start: 2009
  3. NORCO [Suspect]
     Indication: PAIN
     Route: 048
  4. OXYCODONE [Suspect]
     Route: 048
  5. VICODIN [Suspect]
     Indication: PAIN
     Route: 048
  6. MORPHINE [Suspect]
     Indication: PAIN
  7. VALIUM [Suspect]
     Dates: end: 201211
  8. FLUCONAZOLE [Concomitant]
  9. ACIDOPHILUS [Concomitant]
  10. DIPHENHYDRAMINE [Concomitant]

REACTIONS (9)
  - Pharyngeal oedema [None]
  - Pain [None]
  - Headache [None]
  - Renal disorder [None]
  - Drug intolerance [None]
  - Product compounding quality issue [None]
  - Drug withdrawal syndrome [None]
  - Renal pain [None]
  - Hypersensitivity [None]
